FAERS Safety Report 9626735 (Version 1)
Quarter: 2013Q4

REPORT INFORMATION
  Report Type: Report from Study
  Country: DE (occurrence: CO)
  Receive Date: 20131016
  Receipt Date: 20131016
  Transmission Date: 20140711
  Serious: Yes (Death, Hospitalization)
  Sender: FDA-Public Use
  Company Number: DE-ACTELION-A-US2013-89895

PATIENT
  Sex: Female

DRUGS (2)
  1. VENTAVIS [Suspect]
     Indication: PRODUCT USED FOR UNKNOWN INDICATION
     Dosage: UNK
     Route: 065
     Dates: start: 201306
  2. VENTAVIS [Suspect]
     Dosage: UNK
     Route: 065
     Dates: start: 20130805

REACTIONS (3)
  - Respiratory failure [Fatal]
  - Haemoptysis [Fatal]
  - Cardiac failure [Fatal]
